FAERS Safety Report 11403839 (Version 1)
Quarter: 2015Q3

REPORT INFORMATION
  Report Type: Spontaneous
  Country: BE (occurrence: BE)
  Receive Date: 20150821
  Receipt Date: 20150821
  Transmission Date: 20151125
  Serious: Yes (Other)
  Sender: FDA-Public Use
  Company Number: BE-ASTRAZENECA-2015SE57517

PATIENT
  Age: 738 Month
  Sex: Male
  Weight: 147 kg

DRUGS (7)
  1. CARVEDILOL. [Concomitant]
     Active Substance: CARVEDILOL
     Indication: HYPERTENSION
     Route: 048
     Dates: start: 2012
  2. GLUCOPHAGE [Concomitant]
     Active Substance: METFORMIN HYDROCHLORIDE
     Indication: DIABETES MELLITUS
     Route: 048
  3. CO-LISINOPRIL [Concomitant]
     Active Substance: HYDROCHLOROTHIAZIDE\LISINOPRIL
     Indication: HYPERTENSION
     Route: 048
  4. ALLOPURINOL. [Concomitant]
     Active Substance: ALLOPURINOL
     Indication: GOUT
  5. BYDUREON [Suspect]
     Active Substance: EXENATIDE
     Route: 030
     Dates: start: 201504, end: 201505
  6. DAONIL [Concomitant]
     Active Substance: GLYBURIDE
     Indication: DIABETES MELLITUS
     Route: 048
  7. BYDUREON [Suspect]
     Active Substance: EXENATIDE
     Route: 065

REACTIONS (3)
  - Muscle spasms [Not Recovered/Not Resolved]
  - Diarrhoea [Not Recovered/Not Resolved]
  - Incorrect route of drug administration [Unknown]

NARRATIVE: CASE EVENT DATE: 201504
